FAERS Safety Report 8052552-0 (Version None)
Quarter: 2012Q1

REPORT INFORMATION
  Report Type: 
  Country: None (occurrence: None)
  Receive Date: 20120112
  Receipt Date: 20120104
  Transmission Date: 20120608
  Serious: Yes (Death, Hospitalization, Disabling, Other)
  Sender: FDA-Public Use
  Company Number: 2011MA003499

PATIENT
  Sex: Female
  Weight: 82.1011 kg

DRUGS (26)
  1. OMEPRAZOLE [Concomitant]
  2. APAP TAB [Concomitant]
  3. INSULIN [Concomitant]
  4. SINEMET [Concomitant]
  5. LEVODOPA [Concomitant]
  6. LEXAPRO [Concomitant]
  7. MIRAPEX [Concomitant]
  8. NITROGLYCERIN [Concomitant]
  9. CALCIUM [Concomitant]
  10. LABETALOL HCL [Concomitant]
  11. PROMETHAZINE [Concomitant]
  12. SINEMET [Concomitant]
  13. TEMAZEPAM [Concomitant]
  14. FUROSEMIDE [Concomitant]
  15. PROPOXYPHENE HYDROCHLORIDE [Concomitant]
  16. METOCLOPRAMIDE [Suspect]
     Indication: PRODUCT USED FOR UNKNOWN INDICATION
     Dosage: 10 MG;TID;PO
     Route: 048
     Dates: start: 20070514, end: 20091205
  17. ALPRAZOLAM [Concomitant]
  18. AMLODIPINE [Concomitant]
  19. AMOXICILLIN/CALVULANATE [Concomitant]
  20. ISORDIL [Concomitant]
  21. NIFEDIPINE [Concomitant]
  22. CARBIDOPA [Concomitant]
  23. COUMADIN [Concomitant]
  24. LOTREL [Concomitant]
  25. STALEVO 100 [Concomitant]
  26. ZOLPIDEM [Concomitant]

REACTIONS (40)
  - EMOTIONAL DISORDER [None]
  - GAIT DISTURBANCE [None]
  - FALL [None]
  - BRADYKINESIA [None]
  - PAIN IN EXTREMITY [None]
  - ASTHENIA [None]
  - PARKINSON'S DISEASE [None]
  - DECREASED APPETITE [None]
  - LABORATORY TEST ABNORMAL [None]
  - EXTRAPYRAMIDAL DISORDER [None]
  - MUSCULOSKELETAL DISORDER [None]
  - SENSORY LOSS [None]
  - DYSTONIA [None]
  - EYE PAIN [None]
  - DEAFNESS [None]
  - FATIGUE [None]
  - CONFUSIONAL STATE [None]
  - WALKING AID USER [None]
  - WEIGHT DECREASED [None]
  - DEPRESSION [None]
  - INFECTIOUS PERITONITIS [None]
  - DIABETIC NEUROPATHY [None]
  - CARDIAC DISORDER [None]
  - TREMOR [None]
  - AMNESIA [None]
  - NICOTINE DEPENDENCE [None]
  - VOMITING [None]
  - FAMILY STRESS [None]
  - ANXIETY [None]
  - DIABETES MELLITUS [None]
  - PERIARTHRITIS [None]
  - DYSPNOEA [None]
  - DYSARTHRIA [None]
  - HORMONE LEVEL ABNORMAL [None]
  - DEMENTIA [None]
  - ECONOMIC PROBLEM [None]
  - TARDIVE DYSKINESIA [None]
  - PAIN [None]
  - RENAL FAILURE CHRONIC [None]
  - CARDIAC FAILURE CONGESTIVE [None]
